FAERS Safety Report 4313311-5 (Version None)
Quarter: 2004Q1

REPORT INFORMATION
  Report Type: 
  Country: None (occurrence: None)
  Receive Date: 20040304
  Receipt Date: 20021126
  Transmission Date: 20041129
  Serious: Yes (Hospitalization, Disabling)
  Sender: FDA-Public Use
  Company Number: 2003IC000027

PATIENT
  Age: 64 Year
  Sex: Male

DRUGS (2)
  1. 5-FLUOROURACIL (FLUOROURACIL) [Suspect]
     Dosage: 700 MG; 5 DAYS; INTRAVENOUS
     Route: 042
     Dates: start: 19990830, end: 19990903
  2. LEUCOVORIN (FOLINIC ACID) [Suspect]
     Dosage: 30 MG; 5 DAYS; INTRAVENOUS
     Route: 042
     Dates: start: 19990830, end: 19990903

REACTIONS (2)
  - GENERAL NUTRITION DISORDER [None]
  - HICCUPS [None]
